FAERS Safety Report 5679162-4 (Version None)
Quarter: 2008Q1

REPORT INFORMATION
  Report Type: 
  Country: None (occurrence: None)
  Receive Date: 20080325
  Receipt Date: 20080312
  Transmission Date: 20080703
  Serious: Yes (Other)
  Sender: FDA-Public Use
  Company Number: US-BAYER-200810317BCC

PATIENT
  Age: 15 Year
  Sex: Female
  Weight: 57 kg

DRUGS (1)
  1. MIDOL MENSTRUAL COMPLETE MAXIMUM STRENGTH [Suspect]
     Indication: INTENTIONAL OVERDOSE
     Route: 048
     Dates: start: 20080118, end: 20080118

REACTIONS (3)
  - BLOOD POTASSIUM DECREASED [None]
  - SOMNOLENCE [None]
  - VOMITING [None]
